FAERS Safety Report 21836653 (Version 1)
Quarter: 2023Q1

REPORT INFORMATION
  Report Type: Spontaneous
  Country: US (occurrence: US)
  Receive Date: 20230109
  Receipt Date: 20230109
  Transmission Date: 20230417
  Serious: No
  Sender: FDA-Public Use
  Company Number: US-SA-SAC20230106000813

PATIENT

DRUGS (1)
  1. LANTUS SOLOSTAR [Suspect]
     Active Substance: INSULIN GLARGINE
     Dosage: PREFILLED PEN 100 UNITS/MLS (U-100)
     Route: 065

REACTIONS (5)
  - Chest discomfort [Unknown]
  - Gastric disorder [Unknown]
  - Vein disorder [Unknown]
  - Angiopathy [Unknown]
  - Limb discomfort [Unknown]
